FAERS Safety Report 20056850 (Version 2)
Quarter: 2022Q1

REPORT INFORMATION
  Report Type: Spontaneous
  Country: PH (occurrence: None)
  Receive Date: 20211111
  Receipt Date: 20220126
  Transmission Date: 20220424
  Serious: Yes (Death)
  Sender: FDA-Public Use
  Company Number: PH-ROCHE-2952438

PATIENT
  Sex: Male
  Weight: 60 kg

DRUGS (1)
  1. ACTEMRA [Suspect]
     Active Substance: TOCILIZUMAB
     Indication: COVID-19
     Route: 042
     Dates: start: 20210421, end: 20210421

REACTIONS (8)
  - Off label use [Unknown]
  - COVID-19 pneumonia [Fatal]
  - Cardiovascular disorder [Fatal]
  - Infarction [Fatal]
  - Embolism [Fatal]
  - Hypertensive heart disease [Fatal]
  - Type 2 diabetes mellitus [Fatal]
  - Cardiovascular disorder [Fatal]
